FAERS Safety Report 4395681-5 (Version None)
Quarter: 2004Q3

REPORT INFORMATION
  Report Type: 
  Country: None (occurrence: None)
  Receive Date: 20040708
  Receipt Date: 20040625
  Transmission Date: 20050211
  Serious: Yes (Hospitalization)
  Sender: FDA-Public Use
  Company Number: US-JNJFOC-20040607901

PATIENT
  Age: 71 Year
  Sex: Female

DRUGS (18)
  1. INFLIXIMAB(INFLIXIMAB, RECOMBINANT) LYOPHILIZED POWDER [Suspect]
     Indication: RHEUMATOID ARTHRITIS
     Dosage: 5 MG/KG, INTRAVENOUS
     Route: 042
     Dates: start: 20000811, end: 20030625
  2. METHOTREXATE [Concomitant]
  3. IMDUR [Concomitant]
  4. FOSAMAX [Concomitant]
  5. PROTONIX [Concomitant]
  6. TOPROL-XL [Concomitant]
  7. COZAAR [Concomitant]
  8. LASIX (FUROSEMIDE0 [Concomitant]
  9. FOLIC ACID [Concomitant]
  10. PREMARIN [Concomitant]
  11. POTASSIUM (POTASSIUM) [Concomitant]
  12. B6 (CYANOCOBALAMIN) [Concomitant]
  13. B12 (CYANOCOBALAMIN) [Concomitant]
  14. CALCIUM (CALCIUM) [Concomitant]
  15. ASPIRIN [Concomitant]
  16. SEREVENT [Concomitant]
  17. ALBUEROL (SALBUTAMOL) [Concomitant]
  18. VITAMIN C (ASCORBIC ACID) [Concomitant]

REACTIONS (1)
  - SYNOVITIS [None]
